FAERS Safety Report 4749626-6 (Version None)
Quarter: 2005Q3

REPORT INFORMATION
  Report Type: 
  Country: None (occurrence: None)
  Receive Date: 20050819
  Receipt Date: 20050819
  Transmission Date: 20060218
  Serious: Yes (Hospitalization)
  Sender: FDA-Public Use
  Company Number: None

PATIENT
  Age: 57 Year
  Sex: Female
  Weight: 53 kg

DRUGS (1)
  1. TAXOL [Suspect]
     Indication: NEOPLASM MALIGNANT
     Dosage: 322MG  X1  IV
     Route: 042
     Dates: start: 20050721, end: 20050721

REACTIONS (3)
  - CYANOSIS [None]
  - HYPERHIDROSIS [None]
  - RESPIRATORY DISTRESS [None]
